FAERS Safety Report 11337413 (Version 1)
Quarter: 2015Q3

REPORT INFORMATION
  Report Type: Spontaneous
  Country: US (occurrence: US)
  Receive Date: 20150803
  Receipt Date: 20150803
  Transmission Date: 20151125
  Serious: Yes (Other)
  Sender: FDA-Public Use
  Company Number: US-ELI_LILLY_AND_COMPANY-US200902002266

PATIENT
  Age: 29 Year
  Sex: Male

DRUGS (4)
  1. ZYPREXA [Suspect]
     Active Substance: OLANZAPINE
     Indication: BIPOLAR DISORDER
     Dosage: 10 MG, 2/D
  2. ZYPREXA [Suspect]
     Active Substance: OLANZAPINE
     Dates: end: 20090127
  3. SEROQUEL [Concomitant]
     Active Substance: QUETIAPINE FUMARATE
     Dosage: 200 MG, UNK
  4. ETHANOL [Concomitant]
     Active Substance: ALCOHOL

REACTIONS (4)
  - Loss of consciousness [Recovered/Resolved]
  - Depression [Unknown]
  - Anxiety [Unknown]
  - Tremor [Unknown]
